FAERS Safety Report 9639974 (Version 1)
Quarter: 2013Q4

REPORT INFORMATION
  Report Type: Spontaneous
  Country: BR (occurrence: BR)
  Receive Date: 20131023
  Receipt Date: 20131023
  Transmission Date: 20140711
  Serious: Yes (Other)
  Sender: FDA-Public Use
  Company Number: BR-AMGEN-BRASP2013074731

PATIENT
  Age: 57 Year
  Sex: Female
  Weight: 76 kg

DRUGS (2)
  1. ENBREL [Suspect]
     Indication: RHEUMATOID ARTHRITIS
     Dosage: 1 APPLICATION (UNSPECIFIED DOSE) WEEKLY
     Route: 065
     Dates: start: 201306, end: 201308
  2. LOSARTAN [Concomitant]
     Dosage: 1 TABLET (50 MG), DAILY
     Dates: start: 2012

REACTIONS (9)
  - Rheumatic fever [Unknown]
  - Aspartate aminotransferase abnormal [Not Recovered/Not Resolved]
  - Alanine aminotransferase abnormal [Not Recovered/Not Resolved]
  - Joint swelling [Not Recovered/Not Resolved]
  - Joint stiffness [Unknown]
  - Arthritis [Unknown]
  - Oedema peripheral [Unknown]
  - Musculoskeletal pain [Unknown]
  - Foot deformity [Not Recovered/Not Resolved]
